FAERS Safety Report 9817270 (Version 1)
Quarter: 2014Q1

REPORT INFORMATION
  Report Type: Spontaneous
  Country: US (occurrence: US)
  Receive Date: 20140115
  Receipt Date: 20140115
  Transmission Date: 20141002
  Serious: Yes (Other)
  Sender: FDA-Public Use
  Company Number: US-PFIZER INC-2014005912

PATIENT
  Age: 65 Year
  Sex: Female
  Weight: 79.37 kg

DRUGS (26)
  1. CHANTIX [Suspect]
     Indication: SMOKING CESSATION THERAPY
     Dosage: 1 MG, 2X/DAY
     Route: 048
     Dates: start: 20120424, end: 20121129
  2. EFFEXOR XR [Suspect]
     Dosage: 37.5 MG, 1X/DAY
     Route: 048
     Dates: start: 20100317
  3. SPIRIVA [Suspect]
     Dosage: 18MCG CAPSULE 1 (ONE) INHALATION DAILY
     Dates: start: 20131203
  4. ALBUTEROL SULFATE [Concomitant]
     Dosage: (2.5 MG/3ML) 0.083% NEBULIZED SOLN INHALATION, AS NEEDED
     Dates: start: 20100317
  5. ADVAIR DISKUS [Concomitant]
     Dosage: 250-50 MCG/DOSE TWO TIMES DAILY
     Dates: start: 20121011
  6. ADVAIR DISKUS [Concomitant]
     Dosage: 250-50 MCG/DOSE TWO TIMES DAILY
     Dates: start: 20130521
  7. VICODIN [Concomitant]
     Dosage: 5-500 MG, AS NEEDED
     Route: 048
     Dates: start: 20100317
  8. GEMFIBROZIL [Concomitant]
     Dosage: 600 MG, 2X/DAY
     Route: 048
     Dates: start: 20100317
  9. METOPROLOL SUCCINATE [Concomitant]
     Dosage: 25 MG, 1X/DAY
     Route: 048
     Dates: start: 20100317
  10. IMITREX [Concomitant]
     Dosage: 20MG/ACT SOLUTION NASAL AS NEEDED
     Route: 045
     Dates: start: 20100317
  11. VENTOLIN [Concomitant]
     Dosage: 108 (90 BASE ) MCG/ACT AEROSOL SOLN 2 (TWO) INHALATION FOUR TIMES DAILY
     Dates: start: 20120119
  12. VENTOLIN [Concomitant]
     Dosage: 108 (90 BASE ) MCG/ACT AEROSOL SOLN 2 (TWO) INHALATION FOUR TIMES DAILY
     Route: 045
     Dates: start: 20121203
  13. ROFLUMILAST [Concomitant]
     Dosage: 500 UG, 1X/DAY
     Route: 048
     Dates: start: 20130616
  14. IPRATROPIUM BROMIDE [Concomitant]
     Dosage: 0.20% SOL ONE INHALATION TWO TIMES DAILY
     Dates: start: 20120829, end: 20121129
  15. BUDESONIDE [Concomitant]
     Dosage: 0.5 MG/2ML SUSPENSION 1 INHALATION 2 TIMES DAILY
     Dates: start: 20120829, end: 20121129
  16. ARFORMOTEROL INHALED [Concomitant]
     Dosage: 15MCG/2ML, NEBULIZED SOLN 1 INHALATION 2 TIMES DAILY
     Dates: start: 20120829, end: 20121129
  17. MELERIL [Concomitant]
     Dosage: 100 MG, DAILY
     Route: 048
  18. VALIUM [Concomitant]
     Dosage: 10 MG, DAILY
     Route: 048
  19. LANSOPRAZOLE [Concomitant]
     Dosage: 30 MG, DAILY
     Route: 048
  20. SIMVASTATIN [Concomitant]
     Dosage: 40 MG, DAILY
     Route: 048
  21. ACETYLSALICYLIC ACID [Concomitant]
     Dosage: 325 MG, DAILY
     Route: 048
  22. LEVOTHYROXINE SODIUM [Concomitant]
     Dosage: 25 MG, DAILY
     Route: 048
  23. HYDROCHLOROTHIAZIDE [Concomitant]
     Dosage: 25 MG, DAILY
     Route: 048
  24. ACTONEL [Concomitant]
     Dosage: 1 ORAL DAILY SPECIFIC DOSE UNKNOWN
     Route: 048
  25. BYETTA [Concomitant]
     Dosage: 5MCG/0.02 ML SOLUTION 1 SUBCUTANEOUS DAILY
     Route: 058
  26. BIOTIN [Suspect]

REACTIONS (22)
  - Breast cancer [Unknown]
  - Chronic obstructive pulmonary disease [Unknown]
  - Dyspnoea [Unknown]
  - Obesity [Unknown]
  - Weight decreased [Unknown]
  - Contusion [Unknown]
  - Nasal congestion [Unknown]
  - Rhinitis [Unknown]
  - Snoring [Unknown]
  - Hypertension [Unknown]
  - Cardiac disorder [Unknown]
  - Dyspepsia [Unknown]
  - Back pain [Unknown]
  - Arthralgia [Unknown]
  - Joint stiffness [Unknown]
  - Arthritis [Unknown]
  - Migraine [Unknown]
  - Headache [Unknown]
  - Anxiety [Unknown]
  - Depression [Unknown]
  - Hypothyroidism [Unknown]
  - Bronchitis [Unknown]
